FAERS Safety Report 11124159 (Version 1)
Quarter: 2015Q2

REPORT INFORMATION
  Report Type: Spontaneous
  Country: US (occurrence: None)
  Receive Date: 20150519
  Receipt Date: 20150519
  Transmission Date: 20150821
  Serious: Yes (Other)
  Sender: FDA-Public Use
  Company Number: None

PATIENT
  Age: 32 Year
  Sex: Female
  Weight: 74.39 kg

DRUGS (1)
  1. RHINOCORT AQUA [Suspect]
     Active Substance: BUDESONIDE
     Indication: RHINITIS ALLERGIC
     Dosage: ONE SPRAY EACH NOSTRIL QD NASAL SPRAY
     Route: 045
     Dates: start: 201505

REACTIONS (2)
  - Multiple allergies [None]
  - Drug ineffective [None]

NARRATIVE: CASE EVENT DATE: 201505
